FAERS Safety Report 23166997 (Version 2)
Quarter: 2023Q4

REPORT INFORMATION
  Report Type: Spontaneous
  Country: GB (occurrence: GB)
  Receive Date: 20231109
  Receipt Date: 20231123
  Transmission Date: 20240110
  Serious: Yes (Hospitalization, Other)
  Sender: FDA-Public Use
  Company Number: None

PATIENT
  Age: 57 Year
  Sex: Female
  Weight: 68 kg

DRUGS (3)
  1. METHOTREXATE SODIUM [Suspect]
     Active Substance: METHOTREXATE SODIUM
     Dosage: 10 MG, WEEKLY
     Dates: start: 202108
  2. METHOTREXATE SODIUM [Suspect]
     Active Substance: METHOTREXATE SODIUM
     Dosage: 15 MG, WEEKLY
     Dates: start: 2021
  3. FOLIC ACID [Concomitant]
     Active Substance: FOLIC ACID
     Dosage: 6 DAYS A WEEK

REACTIONS (3)
  - Diverticulitis [Recovered/Resolved]
  - Immunosuppression [Unknown]
  - Syncope [Unknown]

NARRATIVE: CASE EVENT DATE: 20210115
